FAERS Safety Report 5339834-8 (Version None)
Quarter: 2007Q2

REPORT INFORMATION
  Report Type: 
  Country: None (occurrence: None)
  Receive Date: 20070529
  Receipt Date: 20070511
  Transmission Date: 20071010
  Serious: Yes (Hospitalization)
  Sender: FDA-Public Use
  Company Number: DSA_29930_2007

PATIENT
  Sex: Male

DRUGS (3)
  1. TAVOR /00273201/ (TAVOR) 1 DF [Suspect]
     Dosage: 1 DF QD ORAL
     Route: 048
     Dates: start: 20070321, end: 20070321
  2. ARICEPT [Suspect]
     Dosage: 10 MG QD ORAL
     Route: 048
     Dates: start: 20070101
  3. MIRTAZAPINE [Concomitant]

REACTIONS (9)
  - CHOLINERGIC SYNDROME [None]
  - COMA [None]
  - LUNG INFILTRATION [None]
  - MIOSIS [None]
  - MUSCLE ATROPHY [None]
  - MUSCLE CONTRACTIONS INVOLUNTARY [None]
  - RESPIRATORY FAILURE [None]
  - SALIVARY HYPERSECRETION [None]
  - TREMOR [None]
